FAERS Safety Report 11890060 (Version 5)
Quarter: 2016Q2

REPORT INFORMATION
  Report Type: Spontaneous
  Country: US (occurrence: US)
  Receive Date: 20160105
  Receipt Date: 20160614
  Transmission Date: 20160815
  Serious: No
  Sender: FDA-Public Use
  Company Number: US-PFIZER INC-2015437139

PATIENT
  Age: 83 Year
  Sex: Female

DRUGS (3)
  1. IBRANCE [Suspect]
     Active Substance: PALBOCICLIB
     Dosage: 125 MG, UNK
     Dates: start: 20160509
  2. IBRANCE [Suspect]
     Active Substance: PALBOCICLIB
     Indication: BREAST CANCER FEMALE
     Dosage: 125 MG, CYCLIC (21 DAYS ON/ 7 DAYS OFF)
  3. IBRANCE [Suspect]
     Active Substance: PALBOCICLIB
     Dosage: 125 MG, UNK
     Dates: start: 20160210

REACTIONS (4)
  - Decreased appetite [Unknown]
  - Toothache [Unknown]
  - Alopecia [Unknown]
  - Nausea [Unknown]
